FAERS Safety Report 17010457 (Version 1)
Quarter: 2019Q4

REPORT INFORMATION
  Report Type: Spontaneous
  Country: HR (occurrence: HR)
  Receive Date: 20191108
  Receipt Date: 20191108
  Transmission Date: 20200122
  Serious: Yes (Other)
  Sender: FDA-Public Use
  Company Number: HR-ASTRAZENECA-2019SF54913

PATIENT
  Age: 29 Year
  Sex: Female

DRUGS (3)
  1. KVENTIAX [Suspect]
     Active Substance: QUETIAPINE FUMARATE
     Dosage: 6000.0MG UNKNOWN
     Route: 048
     Dates: start: 20190810, end: 20190810
  2. ARVIND [Suspect]
     Active Substance: LAMOTRIGINE
     Dosage: 1500.0MG UNKNOWN
     Route: 048
     Dates: start: 20190810, end: 20190810
  3. FEVARIN [Suspect]
     Active Substance: FLUVOXAMINE MALEATE
     Dosage: 3000.0MG UNKNOWN
     Route: 048
     Dates: start: 20190810, end: 20190810

REACTIONS (4)
  - Suicide attempt [Unknown]
  - Urinary retention [Unknown]
  - Heart rate increased [Unknown]
  - Intentional overdose [Unknown]

NARRATIVE: CASE EVENT DATE: 20190810
